FAERS Safety Report 5453672-7 (Version None)
Quarter: 2007Q3

REPORT INFORMATION
  Report Type: 
  Country: None (occurrence: None)
  Receive Date: 20070917
  Receipt Date: 20070910
  Transmission Date: 20080115
  Serious: Yes (Hospitalization, Other)
  Sender: FDA-Public Use
  Company Number: PHEH2007US10698

PATIENT
  Age: 76 Year
  Sex: Male
  Weight: 104 kg

DRUGS (5)
  1. PROCRIT [Concomitant]
     Indication: ANAEMIA
     Dosage: 40000 UNK, QW
     Route: 058
  2. EXJADE [Suspect]
     Indication: IRON OVERLOAD
     Dosage: UNK, QD
     Route: 048
     Dates: start: 20070627, end: 20070724
  3. ACIPHEX [Concomitant]
     Dosage: 20 MG, QD
     Route: 048
  4. METOPROLOL SUCCINATE [Concomitant]
     Dosage: 50 MG, QD
     Route: 048
  5. TRAMADOL HCL [Concomitant]
     Dosage: 50 MG, QD
     Route: 048

REACTIONS (13)
  - ALANINE AMINOTRANSFERASE INCREASED [None]
  - ANOREXIA [None]
  - ASPARTATE AMINOTRANSFERASE INCREASED [None]
  - ASTHENIA [None]
  - BLOOD CREATININE INCREASED [None]
  - BLOOD UREA INCREASED [None]
  - DIARRHOEA [None]
  - GAIT DISTURBANCE [None]
  - GASTROINTESTINAL HAEMORRHAGE [None]
  - HAEMATOCHEZIA [None]
  - HAEMOGLOBIN DECREASED [None]
  - LIVER FUNCTION TEST ABNORMAL [None]
  - RENAL FAILURE ACUTE [None]
